FAERS Safety Report 4437066-9 (Version None)
Quarter: 2004Q3

REPORT INFORMATION
  Report Type: 
  Country: None (occurrence: None)
  Receive Date: 20040830
  Receipt Date: 20040817
  Transmission Date: 20050211
  Serious: Yes (Hospitalization)
  Sender: FDA-Public Use
  Company Number: IT-GLAXOSMITHKLINE-B0343329A

PATIENT
  Age: 88 Year
  Sex: Female

DRUGS (3)
  1. AUGMENTIN '125' [Suspect]
     Indication: CYSTITIS
     Dosage: 1G TWICE PER DAY
     Route: 048
     Dates: start: 20040707, end: 20040708
  2. CALCITRIOL [Concomitant]
     Route: 048
  3. ETORICOXIB [Concomitant]

REACTIONS (3)
  - BLOOD CREATINE ABNORMAL [None]
  - BLOOD SODIUM INCREASED [None]
  - URTICARIA [None]
